FAERS Safety Report 5458648-1 (Version None)
Quarter: 2007Q3

REPORT INFORMATION
  Report Type: 
  Country: None (occurrence: None)
  Receive Date: 20070919
  Receipt Date: 20070418
  Transmission Date: 20080115
  Serious: Yes (Other)
  Sender: FDA-Public Use
  Company Number: US-ASTRAZENECA-2007UW07555

PATIENT

DRUGS (2)
  1. SEROQUEL [Suspect]
     Route: 048
  2. LAMICTAL [Suspect]

REACTIONS (1)
  - TARDIVE DYSKINESIA [None]
